FAERS Safety Report 10269013 (Version 1)
Quarter: 2014Q2

REPORT INFORMATION
  Report Type: Spontaneous
  Country: BE (occurrence: BE)
  Receive Date: 20140630
  Receipt Date: 20140630
  Transmission Date: 20141212
  Serious: Yes (Other)
  Sender: FDA-Public Use
  Company Number: BE-GILEAD-2014-0107074

PATIENT
  Age: 67 Year
  Sex: Male

DRUGS (7)
  1. VIREAD [Suspect]
     Indication: HIV INFECTION
     Dosage: UNK
     Route: 065
  2. EMTRIVA [Suspect]
     Indication: HIV INFECTION
     Route: 065
  3. LOPINAVIR W/RITONAVIR [Concomitant]
     Indication: HIV INFECTION
  4. ETHAMBUTOL [Concomitant]
     Indication: MYCOBACTERIUM AVIUM COMPLEX INFECTION
  5. CLARITROMYCINE [Concomitant]
     Indication: MYCOBACTERIUM AVIUM COMPLEX INFECTION
  6. ABACAVIR [Concomitant]
     Indication: HIV INFECTION
  7. LAMIVUDINE [Concomitant]
     Indication: HIV INFECTION

REACTIONS (4)
  - Pericardial effusion [Unknown]
  - Renal tubular necrosis [Recovered/Resolved]
  - Tubulointerstitial nephritis [Recovered/Resolved]
  - Immune reconstitution inflammatory syndrome [Unknown]
